FAERS Safety Report 5694648-4 (Version None)
Quarter: 2008Q2

REPORT INFORMATION
  Report Type: 
  Country: None (occurrence: None)
  Receive Date: 20080404
  Receipt Date: 20080402
  Transmission Date: 20081010
  Serious: Yes (Death)
  Sender: FDA-Public Use
  Company Number: A0699234A

PATIENT
  Age: 69 Year
  Sex: Male

DRUGS (5)
  1. ADVAIR HFA [Suspect]
     Indication: ASTHMA
     Route: 055
     Dates: start: 20030102, end: 20040628
  2. PRILOSEC [Concomitant]
  3. VERAPAMIL [Concomitant]
  4. PREDNISONE [Concomitant]
  5. ENALAPRIL MALEATE [Concomitant]

REACTIONS (8)
  - AGONAL RHYTHM [None]
  - ANOXIC ENCEPHALOPATHY [None]
  - CARDIAC ARREST [None]
  - COMA [None]
  - CYANOSIS [None]
  - ELECTROMECHANICAL DISSOCIATION [None]
  - LUNG HYPERINFLATION [None]
  - RESPIRATORY ARREST [None]
